FAERS Safety Report 22368743 (Version 1)
Quarter: 2023Q2

REPORT INFORMATION
  Report Type: Spontaneous
  Country: US (occurrence: None)
  Receive Date: 20230525
  Receipt Date: 20230525
  Transmission Date: 20230722
  Serious: Yes (Hospitalization)
  Sender: FDA-Public Use
  Company Number: None

PATIENT
  Age: 61 Year
  Sex: Female

DRUGS (8)
  1. MELATONIN [Suspect]
     Active Substance: MELATONIN
     Indication: Insomnia
     Dosage: FREQUENCY : DAILY;?
     Route: 048
     Dates: start: 20230517
  2. OLANZAPINE [Suspect]
     Active Substance: OLANZAPINE
     Indication: Schizophrenia
     Dosage: FREQUENCY : DAILY;?
     Route: 048
     Dates: start: 20230424
  3. Memantine 10 mg [Concomitant]
     Dates: start: 20230425
  4. AMLODIPINE [Concomitant]
     Active Substance: AMLODIPINE BESYLATE
     Dates: start: 20230214
  5. PROPRANOLOL [Concomitant]
     Active Substance: PROPRANOLOL HYDROCHLORIDE
     Dates: start: 20230303
  6. TRAZODONE [Concomitant]
     Active Substance: TRAZODONE HYDROCHLORIDE
     Dates: start: 20230315
  7. OLANZAPINE [Concomitant]
     Active Substance: OLANZAPINE
     Dates: start: 20230328
  8. Melatonin 3 mg [Concomitant]
     Dates: start: 20230215, end: 20230517

REACTIONS (6)
  - Tremor [None]
  - Staring [None]
  - Unresponsive to stimuli [None]
  - Pupillary reflex impaired [None]
  - Flushing [None]
  - Skin warm [None]

NARRATIVE: CASE EVENT DATE: 20230519
